FAERS Safety Report 12865376 (Version 1)
Quarter: 2016Q4

REPORT INFORMATION
  Report Type: Spontaneous
  Country: US (occurrence: US)
  Receive Date: 20161020
  Receipt Date: 20161020
  Transmission Date: 20170207
  Serious: Yes (Hospitalization)
  Sender: FDA-Public Use
  Company Number: US-JNJFOC-20161013921

PATIENT

DRUGS (3)
  1. CISPLATIN. [Suspect]
     Active Substance: CISPLATIN
     Indication: HEPATOCELLULAR CARCINOMA
     Dosage: TACE GROUP: 50 MG DOSE??DEB-TACE GROUP: 75 MG PER VIAL (WITH MAXIMUM OF 150 MG)
     Route: 013
  2. MITOMYCIN. [Suspect]
     Active Substance: MITOMYCIN
     Indication: HEPATOCELLULAR CARCINOMA
     Dosage: TACE GROUP: 50 MG DOSE??DEB-TACE GROUP: 75 MG PER VIAL (WITH MAXIMUM OF 150 MG)
     Route: 013
  3. DOXORUBICIN HYDROCHLORIDE. [Suspect]
     Active Substance: DOXORUBICIN HYDROCHLORIDE
     Indication: HEPATOCELLULAR CARCINOMA
     Dosage: TACE GROUP: 50 MG DOSE??DEB-TACE GROUP: 75 MG PER VIAL (WITH MAXIMUM OF 150 MG)
     Route: 013

REACTIONS (12)
  - Acute kidney injury [Unknown]
  - Abdominal pain [Unknown]
  - Liver abscess [Unknown]
  - Cytopenia [Unknown]
  - Peritonitis bacterial [Unknown]
  - Gastrointestinal haemorrhage [Unknown]
  - Product use issue [Unknown]
  - Mucosal haemorrhage [Unknown]
  - Hepatic failure [Unknown]
  - Cholecystitis [Unknown]
  - Off label use [Unknown]
  - Ventricular extrasystoles [Unknown]
